FAERS Safety Report 12997644 (Version 1)
Quarter: 2016Q4

REPORT INFORMATION
  Report Type: Spontaneous
  Country: JP (occurrence: JP)
  Receive Date: 20161205
  Receipt Date: 20161205
  Transmission Date: 20170207
  Serious: Yes (Other)
  Sender: FDA-Public Use
  Company Number: JP-BAYER-2016-224931

PATIENT
  Age: 44 Year
  Sex: Female
  Weight: 58.2 kg

DRUGS (8)
  1. BAYASPIRIN 100 MG [Suspect]
     Active Substance: ASPIRIN
     Dosage: FROM 18 TO 36TH WEEK OF GESTATION
     Route: 048
  2. BLOOD AND RELATED PRODUCTS [Concomitant]
     Active Substance: HUMAN BLOOD CELLS
     Dosage: DAILY DOSE 2370 ML
  3. PROPOFOL. [Concomitant]
     Active Substance: PROPOFOL
     Indication: ANAESTHESIA
     Dosage: AT BLOOD CONCENTRATION OF 3 ?G/ML, UNK
  4. PROPOFOL. [Concomitant]
     Active Substance: PROPOFOL
     Indication: ANAESTHESIA
     Dosage: AT BLOOD CONCENTRATION OF AROUND 2.8 ?G/ML, UNK
  5. REMIFENTANIL [Concomitant]
     Active Substance: REMIFENTANIL
     Indication: ANAESTHESIA
     Dosage: 0.5 ?G/KG/MIN, UNK
  6. HEPARIN [Concomitant]
     Active Substance: HEPARIN SODIUM
     Indication: THROMBOSIS PROPHYLAXIS
     Dosage: 3000 UNITS, QD
  7. BUPIVACAINE. [Concomitant]
     Active Substance: BUPIVACAINE
     Indication: ANAESTHESIA
     Dosage: 1.8 ML INJECTED, UNK
  8. ROCURONIUM [Concomitant]
     Active Substance: ROCURONIUM BROMIDE
     Indication: ANAESTHESIA
     Dosage: 40 MG, UNK

REACTIONS (2)
  - Maternal exposure during pregnancy [Recovered/Resolved]
  - Obstructed labour [Recovered/Resolved]
